FAERS Safety Report 8819459 (Version 3)
Quarter: 2012Q4

REPORT INFORMATION
  Report Type: 
  Country: DE (occurrence: DE)
  Receive Date: 20121001
  Receipt Date: 20121121
  Transmission Date: 20130627
  Serious: No
  Sender: FDA-Public Use
  Company Number: DE-BRISTOL-MYERS SQUIBB COMPANY-16980344

PATIENT
  Age: 58 Year
  Sex: Female
  Weight: 118 kg

DRUGS (1)
  1. ONGLYZA TABS 5 MG [Suspect]
     Indication: DIABETES MELLITUS
     Route: 048
     Dates: start: 20120829, end: 20120831

REACTIONS (2)
  - Vomiting [Recovered/Resolved]
  - Cough [Recovered/Resolved]
